FAERS Safety Report 10237692 (Version 1)
Quarter: 2014Q2

REPORT INFORMATION
  Report Type: Spontaneous
  Country: US (occurrence: None)
  Receive Date: 20140613
  Receipt Date: 20140613
  Transmission Date: 20141212
  Serious: Yes (Other)
  Sender: FDA-Public Use
  Company Number: None

PATIENT
  Age: 63 Year
  Sex: Female
  Weight: 51.26 kg

DRUGS (1)
  1. AVONEX 30MCG, INJECTABLE [Suspect]
     Indication: MULTIPLE SCLEROSIS
     Dosage: 30MCG, INJECTABLE Q WEEK
     Route: 030
     Dates: start: 20140318, end: 20140429

REACTIONS (2)
  - Migraine [None]
  - Drug effect incomplete [None]
